FAERS Safety Report 15110403 (Version 1)
Quarter: 2018Q3

REPORT INFORMATION
  Report Type: Spontaneous
  Country: BR (occurrence: BR)
  Receive Date: 20180705
  Receipt Date: 20180705
  Transmission Date: 20181010
  Serious: Yes (Hospitalization, Other)
  Sender: FDA-Public Use
  Company Number: BR-SA-2018SA168632

PATIENT
  Sex: Female
  Weight: 70 kg

DRUGS (2)
  1. CLEXANE [Suspect]
     Active Substance: ENOXAPARIN SODIUM
     Indication: THROMBOSIS
     Dosage: ONE INJECTION QD
     Route: 030
     Dates: start: 2013
  2. MAREVAN [Concomitant]
     Active Substance: WARFARIN SODIUM
     Indication: THROMBOSIS
     Dosage: 4 TABLETS DAILY
     Route: 048
     Dates: start: 201709, end: 201805

REACTIONS (3)
  - Product use issue [Unknown]
  - Hospitalisation [Unknown]
  - Exposure during pregnancy [Unknown]
